FAERS Safety Report 20373462 (Version 5)
Quarter: 2022Q1

REPORT INFORMATION
  Report Type: Spontaneous
  Country: GB (occurrence: GB)
  Receive Date: 20220125
  Receipt Date: 20220324
  Transmission Date: 20220423
  Serious: Yes (Other)
  Sender: FDA-Public Use
  Company Number: GB-MERCK-0701GBR00022

PATIENT
  Age: 54 Year
  Sex: Male

DRUGS (314)
  1. SIMVASTATIN [Suspect]
     Active Substance: SIMVASTATIN
     Indication: Pneumonia
     Dosage: 40 MILLIGRAM, QD
     Route: 042
     Dates: start: 2006
  2. SIMVASTATIN [Suspect]
     Active Substance: SIMVASTATIN
     Dosage: 40 MILLIGRAM, QD
     Route: 065
     Dates: start: 2006
  3. SIMVASTATIN [Suspect]
     Active Substance: SIMVASTATIN
     Dosage: 40 MILLIGRAM, TWO TIMES A DAY
     Route: 042
     Dates: start: 2006
  4. SODIUM CHLORIDE [Suspect]
     Active Substance: SODIUM CHLORIDE
     Indication: Ill-defined disorder
     Dosage: 0.9 PER CENT SOLUTION
     Route: 042
     Dates: start: 2006
  5. SODIUM CHLORIDE [Suspect]
     Active Substance: SODIUM CHLORIDE
     Indication: Pneumonia
     Dosage: 0.9 PER CENT SOLUTION
     Route: 042
     Dates: start: 2006
  6. SODIUM CHLORIDE [Suspect]
     Active Substance: SODIUM CHLORIDE
     Dosage: UNK
     Route: 042
  7. SODIUM CHLORIDE [Suspect]
     Active Substance: SODIUM CHLORIDE
     Dosage: 1 PERCENT, QD
     Route: 042
     Dates: start: 2006
  8. SODIUM CHLORIDE [Suspect]
     Active Substance: SODIUM CHLORIDE
     Dosage: 1 PERCENT
     Route: 042
     Dates: start: 2006
  9. SODIUM CHLORIDE [Suspect]
     Active Substance: SODIUM CHLORIDE
     Dosage: 1 PERCENT, QD
     Route: 042
     Dates: start: 2006
  10. SODIUM CHLORIDE [Suspect]
     Active Substance: SODIUM CHLORIDE
     Dosage: 0.9 PER CENT SOLUTION
     Route: 042
     Dates: start: 2006
  11. ACTRAPID [Suspect]
     Active Substance: INSULIN HUMAN
     Indication: Toxic epidermal necrolysis
     Dosage: 50 UNITS/50ML (124 DOSAGE FORM- INTRAVENOUS
     Route: 042
     Dates: start: 2006
  12. ACTRAPID [Suspect]
     Active Substance: INSULIN HUMAN
     Indication: Pneumonia
     Dosage: UNK
     Route: 042
  13. ACTRAPID [Suspect]
     Active Substance: INSULIN HUMAN
     Indication: Product used for unknown indication
     Dosage: 50 UNITS/50ML
     Route: 042
     Dates: start: 2006
  14. ACTRAPID [Suspect]
     Active Substance: INSULIN HUMAN
     Indication: Diabetes mellitus
     Dosage: UNK
     Route: 042
     Dates: start: 2006
  15. ACTRAPID [Suspect]
     Active Substance: INSULIN HUMAN
     Dosage: 50 UNITS/50ML (124 DOSAGE FORM- INTRAVENOUS
     Route: 042
  16. ACTRAPID [Suspect]
     Active Substance: INSULIN HUMAN
     Dosage: (124 DOSAGE FORM- INTRAVENOUS INFUSION)
     Route: 042
  17. ALFENTANIL HYDROCHLORIDE [Suspect]
     Active Substance: ALFENTANIL HYDROCHLORIDE
     Indication: Ill-defined disorder
     Dosage: DAILY DOSE:  UNKNOWN
     Route: 042
     Dates: start: 2006
  18. ALFENTANIL HYDROCHLORIDE [Suspect]
     Active Substance: ALFENTANIL HYDROCHLORIDE
     Indication: Pneumonia
     Dosage: 120 DOSAGE FORM, INFUSION
     Route: 042
  19. ALFENTANIL HYDROCHLORIDE [Suspect]
     Active Substance: ALFENTANIL HYDROCHLORIDE
     Indication: Product used for unknown indication
     Dosage: UNK
     Route: 042
  20. ALFENTANIL HYDROCHLORIDE [Suspect]
     Active Substance: ALFENTANIL HYDROCHLORIDE
     Dosage: UNK
     Route: 042
  21. ALFENTANIL HYDROCHLORIDE [Suspect]
     Active Substance: ALFENTANIL HYDROCHLORIDE
     Dosage: 120 DOSAGE FORM, INFUSION
     Route: 065
  22. AMOXICILLIN [Suspect]
     Active Substance: AMOXICILLIN
     Indication: Ill-defined disorder
     Dosage: 1 GRAM, TID
     Route: 042
     Dates: start: 20060913
  23. AMOXICILLIN [Suspect]
     Active Substance: AMOXICILLIN
     Indication: Pneumonia
     Dosage: 3 G, QD (DAILY DOSE TEXT: 1 G 3/1 DAYS)
     Route: 042
     Dates: start: 20060913
  24. AMOXICILLIN [Suspect]
     Active Substance: AMOXICILLIN
     Indication: Product used for unknown indication
     Dosage: 250 MILLIGRAM
     Route: 042
     Dates: start: 20060913
  25. AMOXICILLIN [Suspect]
     Active Substance: AMOXICILLIN
     Dosage: 250 MILLIGRAM,TID
     Route: 048
     Dates: start: 20060913
  26. AMOXICILLIN [Suspect]
     Active Substance: AMOXICILLIN
     Dosage: UNK
     Route: 065
  27. AMOXICILLIN [Suspect]
     Active Substance: AMOXICILLIN
     Dosage: 1 G,TID (DAILY DOSE: 3 GRAM(S), 1 G, TID), (0.33 DAY)
     Route: 042
     Dates: start: 20060913
  28. AMOXICILLIN [Suspect]
     Active Substance: AMOXICILLIN
     Dosage: 250 MG, TID (750 MG)UNK
     Route: 048
     Dates: start: 20060913
  29. BACTROBAN [Suspect]
     Active Substance: MUPIROCIN\MUPIROCIN CALCIUM
     Indication: Ill-defined disorder
     Dosage: 10ML/50% 8MMOLS/50MLS
     Route: 065
     Dates: start: 2006
  30. BACTROBAN [Suspect]
     Active Substance: MUPIROCIN\MUPIROCIN CALCIUM
     Indication: Pneumonia
     Dosage: UNKNOWN
     Route: 065
     Dates: start: 2006
  31. BACTROBAN [Suspect]
     Active Substance: MUPIROCIN\MUPIROCIN CALCIUM
     Dosage: 10ML/50% 8MMOLS/50MLS
     Route: 065
     Dates: start: 2006
  32. BACTROBAN [Suspect]
     Active Substance: MUPIROCIN\MUPIROCIN CALCIUM
     Dosage: UNK
     Route: 065
     Dates: start: 2006
  33. BACTROBAN [Suspect]
     Active Substance: MUPIROCIN\MUPIROCIN CALCIUM
     Dosage: UNK
     Route: 065
  34. CALCIUM CHLORIDE [Suspect]
     Active Substance: CALCIUM CHLORIDE
     Indication: Ill-defined disorder
     Dosage: 10 MILLILITER
     Route: 042
     Dates: start: 2006
  35. CALCIUM CHLORIDE [Suspect]
     Active Substance: CALCIUM CHLORIDE
     Indication: Pneumonia
     Dosage: UNK
     Route: 065
  36. CALCIUM CHLORIDE [Suspect]
     Active Substance: CALCIUM CHLORIDE
     Dosage: UNK
     Route: 065
     Dates: start: 2006
  37. CALCIUM CHLORIDE [Suspect]
     Active Substance: CALCIUM CHLORIDE
     Dosage: 10 ML,UNK (DAILY DOSE: 10 MILLILITRE(S))
     Route: 042
     Dates: start: 2006
  38. CALCIUM GLUCONATE [Suspect]
     Active Substance: CALCIUM GLUCONATE
     Indication: Ill-defined disorder
     Dosage: 10 ML
     Route: 042
     Dates: start: 2006
  39. CALCIUM GLUCONATE [Suspect]
     Active Substance: CALCIUM GLUCONATE
     Indication: Pneumonia
     Dosage: UNK
  40. CALCIUM GLUCONATE [Suspect]
     Active Substance: CALCIUM GLUCONATE
     Dosage: 10 ML, QD
     Route: 042
  41. CALCIUM GLUCONATE [Suspect]
     Active Substance: CALCIUM GLUCONATE
     Dosage: ADDITIONAL INFORMATION:PKGID=UNKNOWN
     Route: 042
  42. ROCEPHIN [Suspect]
     Active Substance: CEFTRIAXONE SODIUM
     Indication: Ill-defined disorder
     Dosage: 2 GRAM, QD
     Route: 042
     Dates: start: 2006
  43. ROCEPHIN [Suspect]
     Active Substance: CEFTRIAXONE SODIUM
     Indication: Pneumonia
     Dosage: 2 GRAM
     Route: 042
  44. ROCEPHIN [Suspect]
     Active Substance: CEFTRIAXONE SODIUM
     Dosage: 2 GRAM
     Route: 042
     Dates: start: 2006
  45. ROCEPHIN [Suspect]
     Active Substance: CEFTRIAXONE SODIUM
     Dosage: UNK
     Route: 042
  46. ENOXAPARIN SODIUM [Suspect]
     Active Substance: ENOXAPARIN SODIUM
     Indication: Ill-defined disorder
     Dosage: UNKNOWN
     Route: 065
  47. ENOXAPARIN SODIUM [Suspect]
     Active Substance: ENOXAPARIN SODIUM
     Indication: Pneumonia
     Dosage: 20 MG, QD (DAILY DOSE TEXT: 20MG 1/1DAYS)UNK
     Route: 058
     Dates: start: 2006
  48. ENOXAPARIN SODIUM [Suspect]
     Active Substance: ENOXAPARIN SODIUM
     Indication: Product used for unknown indication
     Dosage: 20 MILLIGRAM, QD
     Route: 058
  49. ENOXAPARIN SODIUM [Suspect]
     Active Substance: ENOXAPARIN SODIUM
     Dosage: 20 MILLIGRAM, QD
     Route: 065
  50. ENOXAPARIN SODIUM [Suspect]
     Active Substance: ENOXAPARIN SODIUM
     Dosage: 20 MILLIGRAM, QD
     Route: 065
  51. DOBUTAMINE [Suspect]
     Active Substance: DOBUTAMINE HYDROCHLORIDE
     Indication: Ill-defined disorder
     Dosage: UNKNOWN/D
     Route: 042
     Dates: start: 2006
  52. DOBUTAMINE [Suspect]
     Active Substance: DOBUTAMINE HYDROCHLORIDE
     Indication: Pneumonia
     Dosage: UNK
  53. DOBUTAMINE [Suspect]
     Active Substance: DOBUTAMINE HYDROCHLORIDE
     Dosage: UNK
  54. ENOXAPARIN SODIUM [Suspect]
     Active Substance: ENOXAPARIN SODIUM
     Indication: Ill-defined disorder
     Dosage: 20 MILLIGRAM, QD
     Route: 065
     Dates: start: 2006
  55. ENOXAPARIN SODIUM [Suspect]
     Active Substance: ENOXAPARIN SODIUM
     Indication: Product used for unknown indication
     Dosage: 20 MILLIGRAM, QD
     Route: 065
  56. ENOXAPARIN SODIUM [Suspect]
     Active Substance: ENOXAPARIN SODIUM
     Dosage: UNK
  57. FLUCONAZOLE [Suspect]
     Active Substance: FLUCONAZOLE
     Indication: Ill-defined disorder
     Dosage: 200 MG, QD (DAILY DOSE TEXT: 200 MG 1/1DAYS)
     Route: 042
     Dates: start: 2006
  58. FLUCONAZOLE [Suspect]
     Active Substance: FLUCONAZOLE
     Indication: Pneumonia
     Dosage: 200 MILLIGRAM, QD
     Route: 042
  59. FLUCONAZOLE [Suspect]
     Active Substance: FLUCONAZOLE
     Indication: Product used for unknown indication
     Dosage: 20 MG, QD
     Route: 065
  60. FLUCONAZOLE [Suspect]
     Active Substance: FLUCONAZOLE
     Dosage: UNK
  61. FLUCONAZOLE [Suspect]
     Active Substance: FLUCONAZOLE
     Dosage: DRUG DOSAGE FORM 230
     Route: 065
  62. FRAGMIN [Suspect]
     Active Substance: DALTEPARIN SODIUM
     Indication: Ill-defined disorder
     Dosage: 2500 IU, QD (DAILY DOSE TEXT: 2500 IU 1/1 DAYS)
     Route: 058
     Dates: start: 2006
  63. FRAGMIN [Suspect]
     Active Substance: DALTEPARIN SODIUM
     Indication: Product used for unknown indication
     Dosage: 2500 INTERNATIONAL UNIT, QD
     Route: 065
     Dates: start: 2006
  64. FRAGMIN [Suspect]
     Active Substance: DALTEPARIN SODIUM
     Indication: Pneumonia
     Dosage: 2500 INTERNATIONAL UNIT, 2500 LU, QD
     Route: 058
  65. FRAGMIN [Suspect]
     Active Substance: DALTEPARIN SODIUM
     Dosage: 2500 INTERNATIONAL UNIT, QD
     Route: 058
  66. FRAGMIN [Suspect]
     Active Substance: DALTEPARIN SODIUM
     Dosage: 200 INTERNATIONAL UNIT, QD
     Route: 058
  67. FRAGMIN [Suspect]
     Active Substance: DALTEPARIN SODIUM
     Dosage: 200 INTERNATIONAL UNIT, QD
     Route: 065
  68. FRAGMIN [Suspect]
     Active Substance: DALTEPARIN SODIUM
     Dosage: 2500 INTERNATIONAL UNIT, QD
     Route: 058
  69. FRAGMIN [Suspect]
     Active Substance: DALTEPARIN SODIUM
     Dosage: UNK, QD
     Route: 058
  70. FRAGMIN [Suspect]
     Active Substance: DALTEPARIN SODIUM
     Dosage: 250 IU
     Route: 058
  71. FRAGMIN [Suspect]
     Active Substance: DALTEPARIN SODIUM
     Dosage: UNK, QD
     Route: 065
  72. FRAGMIN [Suspect]
     Active Substance: DALTEPARIN SODIUM
     Dosage: UNK, QD
     Route: 065
  73. FRAGMIN [Suspect]
     Active Substance: DALTEPARIN SODIUM
     Dosage: 2500 INTERNATIONAL UNIT, QD
     Route: 065
     Dates: start: 2006
  74. FRAGMIN [Suspect]
     Active Substance: DALTEPARIN SODIUM
     Dosage: 200 INTERNATIONAL UNIT
     Route: 058
     Dates: start: 2006
  75. FRAGMIN [Suspect]
     Active Substance: DALTEPARIN SODIUM
     Dosage: 200 INTERNATIONAL UNIT, QD
     Route: 058
  76. FUROSEMIDE [Suspect]
     Active Substance: FUROSEMIDE
     Indication: Ill-defined disorder
     Dosage: 20 MILLIGRAM, BID
     Route: 042
     Dates: start: 2006
  77. FUROSEMIDE [Suspect]
     Active Substance: FUROSEMIDE
     Indication: Product used for unknown indication
     Dosage: 40 MG, QD (DAILY DOSE TEXT: 20MG 2/1 DAYS)
     Route: 042
  78. FUROSEMIDE [Suspect]
     Active Substance: FUROSEMIDE
     Dosage: 20 MILLIGRAM, QD
     Route: 048
     Dates: start: 2006
  79. FUROSEMIDE [Suspect]
     Active Substance: FUROSEMIDE
     Dosage: 20 UNK
     Dates: start: 2006
  80. FUROSEMIDE [Suspect]
     Active Substance: FUROSEMIDE
     Dosage: 20MG 2/1 DAYS
  81. FUROSEMIDE [Suspect]
     Active Substance: FUROSEMIDE
     Dosage: 20 MILLIGRAM, BID
     Route: 048
  82. FUROSEMIDE [Suspect]
     Active Substance: FUROSEMIDE
     Dosage: 20 MILLIGRAM, QD
     Route: 048
     Dates: start: 2006
  83. FUROSEMIDE [Suspect]
     Active Substance: FUROSEMIDE
     Dosage: 20 MG, 1 DOSE 12 HOURS
     Route: 042
  84. HYDROCORTISONE SODIUM SUCCINATE [Suspect]
     Active Substance: HYDROCORTISONE SODIUM SUCCINATE
     Indication: Ill-defined disorder
     Dosage: 100 MG, QD (POWDER FOR SOLUTION FOR INJECTION)
     Route: 065
     Dates: start: 2006
  85. HYDROCORTISONE SODIUM SUCCINATE [Suspect]
     Active Substance: HYDROCORTISONE SODIUM SUCCINATE
     Indication: Pneumonia
     Dosage: UNK
     Route: 065
  86. HYDROCORTISONE SODIUM SUCCINATE [Suspect]
     Active Substance: HYDROCORTISONE SODIUM SUCCINATE
     Indication: Product used for unknown indication
     Dosage: 100 MILLIGRAM, QD
     Route: 042
     Dates: start: 2006
  87. HYDROCORTISONE SODIUM SUCCINATE [Suspect]
     Active Substance: HYDROCORTISONE SODIUM SUCCINATE
     Dosage: UNK
     Route: 065
  88. HYDROCORTISONE SODIUM SUCCINATE [Suspect]
     Active Substance: HYDROCORTISONE SODIUM SUCCINATE
     Dosage: 100 MILLIGRAM, QD
     Route: 042
  89. HYDROCORTISONE SODIUM SUCCINATE [Suspect]
     Active Substance: HYDROCORTISONE SODIUM SUCCINATE
     Dosage: 100 MILLIGRAM, QD
     Route: 042
     Dates: start: 2006
  90. HYDROCORTISONE SODIUM SUCCINATE [Suspect]
     Active Substance: HYDROCORTISONE SODIUM SUCCINATE
     Dosage: 100 MILLIGRAM TOTAL
     Route: 042
     Dates: start: 2006
  91. HYDROCORTISONE SODIUM SUCCINATE [Suspect]
     Active Substance: HYDROCORTISONE SODIUM SUCCINATE
     Dosage: 100 UNK
     Route: 042
  92. HYDROCORTISONE SODIUM SUCCINATE [Suspect]
     Active Substance: HYDROCORTISONE SODIUM SUCCINATE
     Dosage: 100 MILLIGRAM
     Route: 065
  93. HYDROCORTISONE SODIUM SUCCINATE [Suspect]
     Active Substance: HYDROCORTISONE SODIUM SUCCINATE
     Dosage: 100 MILLIGRAM TOTAL
     Route: 065
  94. HEPARIN SODIUM [Suspect]
     Active Substance: HEPARIN SODIUM
     Indication: Product used for unknown indication
     Dosage: 3500 MICROGRAM, QD
     Route: 065
  95. HEPARIN SODIUM [Suspect]
     Active Substance: HEPARIN SODIUM
     Dosage: 3500 UG, QD
     Route: 065
  96. LACTULOSE [Suspect]
     Active Substance: LACTULOSE
     Indication: Ill-defined disorder
     Dosage: DAILY DOSE: 10 MILLILITRE(S)
     Route: 065
     Dates: start: 2006
  97. LACTULOSE [Suspect]
     Active Substance: LACTULOSE
     Indication: Pneumonia
     Dosage: UNK
  98. LACTULOSE [Suspect]
     Active Substance: LACTULOSE
     Dosage: 0 ML, QD
     Route: 065
  99. LACTULOSE [Suspect]
     Active Substance: LACTULOSE
     Dosage: 10 UNK
     Route: 065
     Dates: start: 2006
  100. LACTULOSE [Suspect]
     Active Substance: LACTULOSE
     Dosage: 10 MILLILITER
     Route: 065
     Dates: start: 2006
  101. LACTULOSE [Suspect]
     Active Substance: LACTULOSE
     Dosage: 10 MILLILITER, QD
     Route: 065
  102. LORAZEPAM [Suspect]
     Active Substance: LORAZEPAM
     Indication: Ill-defined disorder
     Dosage: 1.2 GRAM, ONCE
     Route: 065
     Dates: start: 2006
  103. LORAZEPAM [Suspect]
     Active Substance: LORAZEPAM
     Indication: Pneumonia
     Dosage: 1-2MG ONCE ONLY
     Route: 065
  104. LORAZEPAM [Suspect]
     Active Substance: LORAZEPAM
     Indication: Product used for unknown indication
     Dosage: 1-2MG ONCE ONLY
     Route: 065
  105. LORAZEPAM [Suspect]
     Active Substance: LORAZEPAM
     Dosage: UNK
  106. LANSOPRAZOLE [Suspect]
     Active Substance: LANSOPRAZOLE
     Indication: Ill-defined disorder
     Dosage: DAILY DOSE: 30 MILLIGRAM(S), ZOTON
     Route: 065
     Dates: start: 2006
  107. LANSOPRAZOLE [Suspect]
     Active Substance: LANSOPRAZOLE
     Indication: Pneumonia
     Dosage: 3 GRAM
     Route: 065
  108. LANSOPRAZOLE [Suspect]
     Active Substance: LANSOPRAZOLE
     Indication: Product used for unknown indication
     Dosage: 30 MILLIGRAM
     Route: 065
  109. LANSOPRAZOLE [Suspect]
     Active Substance: LANSOPRAZOLE
     Dosage: 30 MILLIGRAM, QD
  110. LANSOPRAZOLE [Suspect]
     Active Substance: LANSOPRAZOLE
     Dosage: UNK
  111. MAGNESIUM SULFATE [Suspect]
     Active Substance: MAGNESIUM SULFATE
     Indication: Ill-defined disorder
     Dosage: 10ML/50% 8MMOLS/50MLS
     Route: 061
     Dates: start: 2006
  112. MAGNESIUM SULFATE [Suspect]
     Active Substance: MAGNESIUM SULFATE
     Indication: Pneumonia
     Dosage: 10ML/50% 8MMOLS/50MLS (INFUSION)
     Route: 065
     Dates: start: 2006
  113. MAGNESIUM SULFATE [Suspect]
     Active Substance: MAGNESIUM SULFATE
     Indication: Product used for unknown indication
     Dosage: UNK
     Route: 065
  114. MAGNESIUM SULFATE [Suspect]
     Active Substance: MAGNESIUM SULFATE
     Dosage: UNK
     Route: 065
  115. MAGNESIUM SULFATE [Suspect]
     Active Substance: MAGNESIUM SULFATE
     Dosage: UNK (10ML/50% 8MMOLS/50ML)
  116. POTASSIUM BICARBONATE\POTASSIUM CHLORIDE [Suspect]
     Active Substance: POTASSIUM BICARBONATE\POTASSIUM CHLORIDE
     Indication: Ill-defined disorder
     Dosage: 2 DOSAGE FORM, Q8H, DAILY DOSE TEXT: 2 DL 3/1DAYS, DAILY DOSE: 6 DOSAGE FORM, 2 DF, TID
     Route: 061
     Dates: start: 2006
  117. POTASSIUM BICARBONATE\POTASSIUM CHLORIDE [Suspect]
     Active Substance: POTASSIUM BICARBONATE\POTASSIUM CHLORIDE
     Indication: Product used for unknown indication
     Dosage: 6 DOSAGE FORM, QD
     Route: 065
  118. POTASSIUM BICARBONATE\POTASSIUM CHLORIDE [Suspect]
     Active Substance: POTASSIUM BICARBONATE\POTASSIUM CHLORIDE
     Indication: Pneumonia
     Dosage: UNK
     Route: 065
  119. POTASSIUM BICARBONATE\POTASSIUM CHLORIDE [Suspect]
     Active Substance: POTASSIUM BICARBONATE\POTASSIUM CHLORIDE
     Dosage: DAILY DOSE TEXT: 2 DL 3/1DAYS
     Route: 065
  120. POTASSIUM BICARBONATE\POTASSIUM CHLORIDE [Suspect]
     Active Substance: POTASSIUM BICARBONATE\POTASSIUM CHLORIDE
     Dosage: 40MMOLS/100ML INFUSION
     Route: 065
  121. POTASSIUM BICARBONATE\POTASSIUM CHLORIDE [Suspect]
     Active Substance: POTASSIUM BICARBONATE\POTASSIUM CHLORIDE
     Dosage: 2 DOSAGE FORM, QD
     Route: 065
  122. POTASSIUM BICARBONATE\POTASSIUM CHLORIDE [Suspect]
     Active Substance: POTASSIUM BICARBONATE\POTASSIUM CHLORIDE
     Dosage: UNK
     Route: 065
     Dates: start: 2006
  123. NOREPINEPHRINE BITARTRATE [Suspect]
     Active Substance: NOREPINEPHRINE BITARTRATE
     Indication: Ill-defined disorder
     Dosage: DAILY DOSE:  UNKNOWN
     Route: 065
     Dates: start: 2006
  124. NOREPINEPHRINE BITARTRATE [Suspect]
     Active Substance: NOREPINEPHRINE BITARTRATE
     Indication: Pneumonia
     Dosage: UNK
     Route: 065
  125. NOREPINEPHRINE BITARTRATE [Suspect]
     Active Substance: NOREPINEPHRINE BITARTRATE
     Dosage: UNK, QD
     Route: 065
     Dates: start: 2006
  126. NOREPINEPHRINE BITARTRATE [Suspect]
     Active Substance: NOREPINEPHRINE BITARTRATE
     Dosage: UNK
     Route: 065
  127. NOREPINEPHRINE HYDROCHLORIDE, (+/-)- [Suspect]
     Active Substance: NOREPINEPHRINE HYDROCHLORIDE, (+/-)-
     Indication: Pneumonia
     Dosage: UNK
     Route: 065
     Dates: start: 2006
  128. NOREPINEPHRINE HYDROCHLORIDE, (+/-)- [Suspect]
     Active Substance: NOREPINEPHRINE HYDROCHLORIDE, (+/-)-
     Indication: Ill-defined disorder
     Dosage: UNK
     Route: 065
  129. NOREPINEPHRINE HYDROCHLORIDE, (+/-)- [Suspect]
     Active Substance: NOREPINEPHRINE HYDROCHLORIDE, (+/-)-
     Indication: Product used for unknown indication
     Dosage: UNK
     Route: 065
  130. NOREPINEPHRINE HYDROCHLORIDE, (+/-)- [Suspect]
     Active Substance: NOREPINEPHRINE HYDROCHLORIDE, (+/-)-
     Dosage: UNK
  131. OMEPRAZOLE [Suspect]
     Active Substance: OMEPRAZOLE
     Indication: Ill-defined disorder
     Dosage: 40 MG (DAILY DOSE TEXT: 40MG)
     Route: 042
     Dates: start: 2006
  132. OMEPRAZOLE [Suspect]
     Active Substance: OMEPRAZOLE
     Indication: Pneumonia
     Dosage: 40 MILLIGRAM
     Route: 042
  133. OMEPRAZOLE [Suspect]
     Active Substance: OMEPRAZOLE
     Dosage: UNK
     Route: 065
  134. OMEPRAZOLE [Suspect]
     Active Substance: OMEPRAZOLE
     Dosage: UNK
     Route: 065
  135. OMEPRAZOLE [Suspect]
     Active Substance: OMEPRAZOLE
     Dosage: 40 MILLIGRAM
     Route: 042
     Dates: start: 2006
  136. OMEPRAZOLE [Suspect]
     Active Substance: OMEPRAZOLE
     Dosage: 40 MILLIGRAM, QD
     Route: 042
  137. OMEPRAZOLE [Suspect]
     Active Substance: OMEPRAZOLE
     Dosage: UNK
  138. OMEPRAZOLE [Suspect]
     Active Substance: OMEPRAZOLE
     Dosage: 40 MILLIGRAM, QD
     Route: 042
  139. ACETAMINOPHEN [Suspect]
     Active Substance: ACETAMINOPHEN
     Indication: Ill-defined disorder
     Dosage: 50 UNITS/50ML
     Route: 042
     Dates: start: 2006
  140. ACETAMINOPHEN [Suspect]
     Active Substance: ACETAMINOPHEN
     Indication: Pneumonia
     Dosage: DAILY DOSE: UNKNOWN
     Route: 065
     Dates: start: 2006
  141. ACETAMINOPHEN [Suspect]
     Active Substance: ACETAMINOPHEN
     Dosage: UNK
     Route: 065
  142. ACETAMINOPHEN [Suspect]
     Active Substance: ACETAMINOPHEN
     Dosage: UNK
     Route: 065
  143. CHLORPHENIRAMINE MALEATE [Suspect]
     Active Substance: CHLORPHENIRAMINE MALEATE
     Indication: Ill-defined disorder
     Dosage: DAILY DOSE: 40 MILLIGRAM(S), 10 MG, QID
     Route: 042
     Dates: start: 2006
  144. CHLORPHENIRAMINE MALEATE [Suspect]
     Active Substance: CHLORPHENIRAMINE MALEATE
     Indication: Pneumonia
     Dosage: 10 MILLIGRAM, QID
     Route: 042
     Dates: start: 2006
  145. CHLORPHENIRAMINE MALEATE [Suspect]
     Active Substance: CHLORPHENIRAMINE MALEATE
     Dosage: 10 MG, QID (IN EVERY 6 HOURS)
     Route: 042
  146. CHLORPHENIRAMINE MALEATE [Suspect]
     Active Substance: CHLORPHENIRAMINE MALEATE
     Dosage: 40 MG, QD (DAILY DOSE TEXT: 10MG 4/1DAYS)
     Route: 042
  147. CHLORPHENIRAMINE MALEATE [Suspect]
     Active Substance: CHLORPHENIRAMINE MALEATE
     Dosage: 40 MG, QD (DAILY DOSE TEXT: 10MG 4/1DAYS)
     Route: 042
  148. CHLORPHENIRAMINE MALEATE [Suspect]
     Active Substance: CHLORPHENIRAMINE MALEATE
     Dosage: 10 MILLIGRAM
     Route: 042
  149. CHLORPHENIRAMINE MALEATE [Suspect]
     Active Substance: CHLORPHENIRAMINE MALEATE
     Dosage: 10 MG, QID
     Route: 042
  150. CHLORPHENIRAMINE MALEATE [Suspect]
     Active Substance: CHLORPHENIRAMINE MALEATE
     Dosage: 40 MG, QD 10 MG,QID (DAILY DOSE: 40 MILLIGRAM(S), 10
     Route: 042
     Dates: start: 2006
  151. POTASSIUM CHLORIDE [Suspect]
     Active Substance: POTASSIUM CHLORIDE
     Indication: Ill-defined disorder
     Dosage: 40MMOLS/100ML INFUSION
     Route: 065
     Dates: start: 2006
  152. POTASSIUM CHLORIDE [Suspect]
     Active Substance: POTASSIUM CHLORIDE
     Indication: Pneumonia
     Dosage: UNK, TID
     Route: 065
  153. POTASSIUM CHLORIDE [Suspect]
     Active Substance: POTASSIUM CHLORIDE
     Dosage: UNK, TID (0.33 DAY)
     Route: 065
  154. POTASSIUM CHLORIDE [Suspect]
     Active Substance: POTASSIUM CHLORIDE
     Dosage: 2 DF 8HRS 2 DF 3/1 DAYS
     Route: 065
  155. POTASSIUM CHLORIDE [Suspect]
     Active Substance: POTASSIUM CHLORIDE
     Dosage: 2 DOSAGE FORM, TID
     Route: 061
     Dates: start: 2006
  156. POTASSIUM CHLORIDE [Suspect]
     Active Substance: POTASSIUM CHLORIDE
     Dosage: 2 DOSAGE FORM, QD
     Route: 061
  157. POTASSIUM CHLORIDE [Suspect]
     Active Substance: POTASSIUM CHLORIDE
     Dosage: 2 DF, TID
     Route: 061
  158. POTASSIUM CHLORIDE [Suspect]
     Active Substance: POTASSIUM CHLORIDE
     Dosage: 2 DF, Q8H
     Route: 065
  159. POTASSIUM CHLORIDE [Suspect]
     Active Substance: POTASSIUM CHLORIDE
     Dosage: UNK, QD
     Route: 065
  160. POTASSIUM CHLORIDE [Suspect]
     Active Substance: POTASSIUM CHLORIDE
     Dosage: TID, 40MMOLS/100ML INFUSION
     Route: 065
  161. POTASSIUM CHLORIDE [Suspect]
     Active Substance: POTASSIUM CHLORIDE
     Dosage: 6 DOSAGE FORM, QD
     Route: 065
  162. POTASSIUM CHLORIDE [Suspect]
     Active Substance: POTASSIUM CHLORIDE
     Dosage: 2DF, THREE TIMES A DAY
     Dates: start: 2006
  163. POTASSIUM CHLORIDE [Suspect]
     Active Substance: POTASSIUM CHLORIDE
     Dosage: 6 DOSAGE FORM, 2 DF, QD
     Route: 065
  164. POTASSIUM CHLORIDE [Suspect]
     Active Substance: POTASSIUM CHLORIDE
     Dosage: 6 DOSAGE FORM, TID
     Route: 065
  165. POTASSIUM CHLORIDE [Suspect]
     Active Substance: POTASSIUM CHLORIDE
     Dosage: 2 DOSAGE FORM, QD
     Route: 061
  166. POTASSIUM PHOSPHATE, DIBASIC\POTASSIUM PHOSPHATE, MONOBASIC [Suspect]
     Active Substance: POTASSIUM PHOSPHATE, DIBASIC\POTASSIUM PHOSPHATE, MONOBASIC
     Indication: Ill-defined disorder
     Dosage: DAILY DOSE: UNKNOWN
     Route: 065
     Dates: start: 2006
  167. POTASSIUM PHOSPHATE, DIBASIC\POTASSIUM PHOSPHATE, MONOBASIC [Suspect]
     Active Substance: POTASSIUM PHOSPHATE, DIBASIC\POTASSIUM PHOSPHATE, MONOBASIC
     Indication: Pneumonia
     Dosage: UNK
     Route: 065
  168. PROPOFOL [Suspect]
     Active Substance: PROPOFOL
     Indication: Ill-defined disorder
     Dosage: DAILY DOSE:  UNKNOWN
     Route: 065
     Dates: start: 2006
  169. PROPOFOL [Suspect]
     Active Substance: PROPOFOL
     Indication: Pneumonia
     Dosage: UNK
     Route: 065
     Dates: start: 2006
  170. PROPOFOL [Suspect]
     Active Substance: PROPOFOL
     Dosage: UNK, INTRAVENOUS INFUSION
     Route: 042
     Dates: start: 2006
  171. PROPOFOL [Suspect]
     Active Substance: PROPOFOL
     Dosage: UNK
     Route: 065
     Dates: start: 2006
  172. PHYTONADIONE [Suspect]
     Active Substance: PHYTONADIONE
     Indication: Ill-defined disorder
     Dosage: DAILY DOSE:  UNKNOWN
     Route: 065
     Dates: start: 2006
  173. PHYTONADIONE [Suspect]
     Active Substance: PHYTONADIONE
     Indication: Pneumonia
     Dosage: UNK
     Route: 065
  174. PHYTONADIONE [Suspect]
     Active Substance: PHYTONADIONE
     Dosage: UNK
     Route: 065
     Dates: start: 2006
  175. ALBUTEROL [Suspect]
     Active Substance: ALBUTEROL
     Indication: Ill-defined disorder
     Dosage: AS NECESSARY
     Route: 065
     Dates: start: 2006
  176. ALBUTEROL [Suspect]
     Active Substance: ALBUTEROL
     Indication: Pneumonia
     Dosage: NEBULISER, AS NECESSARY
     Route: 065
  177. ALBUTEROL [Suspect]
     Active Substance: ALBUTEROL
     Dosage: 1 DOSAGE FORM, PRN
     Route: 065
  178. ALBUTEROL [Suspect]
     Active Substance: ALBUTEROL
     Dosage: UNK UNK, PRN (DAILY DOSE TEXT: AS NECESSARY)
     Route: 065
  179. ALBUTEROL [Suspect]
     Active Substance: ALBUTEROL
     Dosage: UNK (ADDITIONAL INFO: NEBULISER)
     Route: 065
  180. ALBUTEROL [Suspect]
     Active Substance: ALBUTEROL
     Dosage: UNK
     Route: 065
  181. ALBUTEROL [Suspect]
     Active Substance: ALBUTEROL
     Dosage: UNK UNK, PRN
     Route: 065
     Dates: start: 2006
  182. SILVER SULFADIAZINE [Suspect]
     Active Substance: SILVER SULFADIAZINE
     Indication: Ill-defined disorder
     Dosage: DAILY DOSE:  UNKNOWN
     Route: 065
     Dates: start: 2006
  183. SILVER SULFADIAZINE [Suspect]
     Active Substance: SILVER SULFADIAZINE
     Indication: Product used for unknown indication
     Dosage: UNK
     Route: 061
  184. SILVER SULFADIAZINE [Suspect]
     Active Substance: SILVER SULFADIAZINE
     Dosage: UNK
     Route: 061
     Dates: start: 2006
  185. SODIUM BICARBONATE [Suspect]
     Active Substance: SODIUM BICARBONATE
     Indication: Ill-defined disorder
     Dosage: 100 MG, QOW
     Route: 042
     Dates: start: 2006
  186. SODIUM BICARBONATE [Suspect]
     Active Substance: SODIUM BICARBONATE
     Indication: Product used for unknown indication
     Dosage: 100 MILLIGRAM (ADMINISTRATION OVER AN HOUR)
     Route: 042
  187. SODIUM BICARBONATE [Suspect]
     Active Substance: SODIUM BICARBONATE
     Indication: Pneumonia
     Dosage: 100 MG,BIWEEKLY
     Route: 042
  188. SODIUM BICARBONATE [Suspect]
     Active Substance: SODIUM BICARBONATE
     Dosage: 100 ML, QH
     Route: 042
  189. SODIUM BICARBONATE [Suspect]
     Active Substance: SODIUM BICARBONATE
     Dosage: 100 ML, QH
     Route: 042
  190. SODIUM BICARBONATE [Suspect]
     Active Substance: SODIUM BICARBONATE
     Dosage: UNK
     Route: 042
     Dates: start: 2006
  191. SODIUM BICARBONATE [Suspect]
     Active Substance: SODIUM BICARBONATE
     Dosage: 100 MG(100 MG HOURLY)
     Route: 042
  192. SODIUM BICARBONATE [Suspect]
     Active Substance: SODIUM BICARBONATE
     Dosage: 100 MG, QH
     Route: 042
     Dates: start: 2006
  193. SODIUM BICARBONATE [Suspect]
     Active Substance: SODIUM BICARBONATE
     Dosage: 100 MILLIHRAM, HOURLY
     Route: 042
  194. SODIUM BICARBONATE [Suspect]
     Active Substance: SODIUM BICARBONATE
     Dosage: 100 ML, QH
     Route: 042
  195. SODIUM BICARBONATE [Suspect]
     Active Substance: SODIUM BICARBONATE
     Dosage: 100 MG, QH
     Route: 042
  196. SODIUM BICARBONATE [Suspect]
     Active Substance: SODIUM BICARBONATE
     Dosage: 100 ML, QH
     Route: 042
  197. SODIUM BICARBONATE [Suspect]
     Active Substance: SODIUM BICARBONATE
     Indication: Product used for unknown indication
     Dosage: 100 MILLIGRAM, HOURLY
     Route: 042
  198. SODIUM BICARBONATE [Suspect]
     Active Substance: SODIUM BICARBONATE
     Dosage: 100 MILLILITER HOURLY
     Route: 042
  199. SILVER SULFADIAZENE [Suspect]
     Active Substance: SILVER SULFADIAZINE
     Indication: Ill-defined disorder
     Dosage: UNKNOWN/D
     Route: 061
     Dates: start: 2006
  200. SILVER SULFADIAZENE [Suspect]
     Active Substance: SILVER SULFADIAZINE
     Indication: Product used for unknown indication
     Dosage: UNK
     Route: 061
  201. SILVER SULFADIAZENE [Suspect]
     Active Substance: SILVER SULFADIAZINE
     Dosage: UNK
     Route: 061
  202. SILVER SULFADIAZENE [Suspect]
     Active Substance: SILVER SULFADIAZINE
     Dosage: DAILY DOSE: UNKNOWN
     Dates: start: 2006
  203. THIAMINE HYDROCHLORIDE [Suspect]
     Active Substance: THIAMINE HYDROCHLORIDE
     Indication: Ill-defined disorder
     Dosage: 100 MILLIGRAM, QD
     Route: 042
     Dates: start: 2006
  204. THIAMINE HYDROCHLORIDE [Suspect]
     Active Substance: THIAMINE HYDROCHLORIDE
     Indication: Pneumonia
     Dosage: 100 MILLIGRAM, QD
     Route: 048
  205. THIAMINE HYDROCHLORIDE [Suspect]
     Active Substance: THIAMINE HYDROCHLORIDE
     Dosage: 100 MILLIGRAM, QD
     Route: 048
     Dates: start: 2006
  206. THIAMINE HYDROCHLORIDE [Suspect]
     Active Substance: THIAMINE HYDROCHLORIDE
     Dosage: UNK
  207. THIAMINE HYDROCHLORIDE [Suspect]
     Active Substance: THIAMINE HYDROCHLORIDE
     Dosage: 100 MILLIGRAM, QD
     Route: 048
  208. THIAMINE HYDROCHLORIDE [Suspect]
     Active Substance: THIAMINE HYDROCHLORIDE
     Dosage: UNK
     Route: 065
  209. THIAMINE HYDROCHLORIDE [Suspect]
     Active Substance: THIAMINE HYDROCHLORIDE
     Dosage: UNK
     Route: 065
  210. TINZAPARIN SODIUM [Suspect]
     Active Substance: TINZAPARIN SODIUM
     Indication: Ill-defined disorder
     Dosage: 3500 UG, QD, STRUCTURE DOSAGE UNIT REPORTED AS AMCL MICROLITRE(S)
     Route: 065
     Dates: start: 2006
  211. TINZAPARIN SODIUM [Suspect]
     Active Substance: TINZAPARIN SODIUM
     Indication: Pneumonia
     Dosage: 3500 MICROLITER, QD
     Route: 065
  212. TINZAPARIN SODIUM [Suspect]
     Active Substance: TINZAPARIN SODIUM
     Dosage: 3500 ?L,QD (DAILY DOSE TEXT: 3500 MICROLITERS UNK
     Route: 065
     Dates: start: 2006
  213. TINZAPARIN SODIUM [Suspect]
     Active Substance: TINZAPARIN SODIUM
     Dosage: 1 UNK, QD (DAILY DOSE TEXT: 3500 MICROLITERS
     Route: 065
  214. TINZAPARIN SODIUM [Suspect]
     Active Substance: TINZAPARIN SODIUM
     Dosage: 3500 UG, QD (UG, 1X/DAY)
     Route: 048
  215. TINZAPARIN SODIUM [Suspect]
     Active Substance: TINZAPARIN SODIUM
     Dosage: 4 UNK
     Route: 065
  216. INSULIN HUMAN [Suspect]
     Active Substance: INSULIN HUMAN
     Indication: Diabetes mellitus
     Dosage: AT A DOSE OF 50 UNITS/50ML
     Route: 042
     Dates: start: 2006
  217. TRICLOSAN [Suspect]
     Active Substance: TRICLOSAN
     Indication: Ill-defined disorder
     Dosage: UNKNOWN/D
     Route: 065
     Dates: start: 2006
  218. TRICLOSAN [Suspect]
     Active Substance: TRICLOSAN
     Indication: Pneumonia
     Dosage: UNK
     Route: 065
     Dates: start: 2006
  219. TRICLOSAN [Suspect]
     Active Substance: TRICLOSAN
     Dosage: 24 UNK
     Route: 065
     Dates: start: 2006
  220. TRICLOSAN [Suspect]
     Active Substance: TRICLOSAN
     Dosage: 24 DOSAGE FORM (CUTANEOUS SOLUTION)
     Route: 065
     Dates: start: 2006
  221. TRICLOSAN [Suspect]
     Active Substance: TRICLOSAN
     Dosage: 24 DOSAGE FORM (CUTANEOUS SOLUTION)
     Route: 065
     Dates: start: 2006
  222. TRICLOSAN [Suspect]
     Active Substance: TRICLOSAN
     Dosage: 24 DOSAGE FORM (CUTANEOUS SOLUTION)
     Route: 065
     Dates: start: 2006
  223. LANSOPRAZOLE [Suspect]
     Active Substance: LANSOPRAZOLE
     Indication: Ill-defined disorder
     Dosage: 30 MG, QD
     Route: 065
     Dates: start: 2006
  224. LANSOPRAZOLE [Suspect]
     Active Substance: LANSOPRAZOLE
     Dosage: 10 MILLILITER
     Route: 065
     Dates: start: 2006
  225. LANSOPRAZOLE [Suspect]
     Active Substance: LANSOPRAZOLE
     Dosage: 30 MG
     Route: 065
  226. LANSOPRAZOLE [Suspect]
     Active Substance: LANSOPRAZOLE
     Dosage: 1-2 MG ONCE DAILY
     Route: 065
  227. LANSOPRAZOLE [Suspect]
     Active Substance: LANSOPRAZOLE
     Dosage: 3 G
     Route: 065
  228. LANSOPRAZOLE [Suspect]
     Active Substance: LANSOPRAZOLE
     Dosage: 30 UNK
     Route: 065
  229. LANSOPRAZOLE [Suspect]
     Active Substance: LANSOPRAZOLE
     Dosage: 3 G
     Route: 065
  230. LANSOPRAZOLE [Suspect]
     Active Substance: LANSOPRAZOLE
     Dosage: 30 UNK
     Route: 065
  231. VITAMIN K1 [Suspect]
     Active Substance: PHYTONADIONE
     Indication: Pneumonia
     Dosage: UNK
     Route: 065
     Dates: start: 2006
  232. VITAMIN K1 [Suspect]
     Active Substance: PHYTONADIONE
     Indication: Product used for unknown indication
     Dosage: UNK
     Route: 065
     Dates: start: 2006
  233. VITAMIN K1 [Suspect]
     Active Substance: PHYTONADIONE
     Dosage: ADDITIONAL INFORMATION: PKGID=UNKNOWN
     Dates: start: 2006
  234. VITAMIN K1 [Suspect]
     Active Substance: PHYTONADIONE
     Dosage: ADDITIONAL INFORMATION: PKGID=UNKNOWNUNK
  235. ANHYDROUS CITRIC ACID [Suspect]
     Active Substance: ANHYDROUS CITRIC ACID
     Indication: Pneumonia
     Dosage: UNK
     Route: 065
     Dates: start: 2006
  236. ANHYDROUS CITRIC ACID [Suspect]
     Active Substance: ANHYDROUS CITRIC ACID
     Indication: Ill-defined disorder
     Dosage: 100 MILLIGRAM, QD
     Route: 048
     Dates: start: 2006
  237. ANHYDROUS CITRIC ACID [Suspect]
     Active Substance: ANHYDROUS CITRIC ACID
     Dosage: 100 MILLIGRAM, QD
     Route: 065
  238. ANHYDROUS CITRIC ACID [Suspect]
     Active Substance: ANHYDROUS CITRIC ACID
     Dosage: 100 MILLIGRAM, QD
     Route: 048
     Dates: start: 2006
  239. AMOXICILLIN TRIHYDRATE [Suspect]
     Active Substance: AMOXICILLIN
     Indication: Product used for unknown indication
     Dosage: 250 MILLIGRAM, TID
     Route: 042
     Dates: start: 20060913
  240. AMOXICILLIN TRIHYDRATE [Suspect]
     Active Substance: AMOXICILLIN
     Indication: Ill-defined disorder
     Dosage: 3 G, 1X/DAY/ 1 G,TID (DAILY DOSE: 3 GRAM(S), 1 G, TID),
     Route: 042
     Dates: start: 20060913
  241. AMOXICILLIN TRIHYDRATE [Suspect]
     Active Substance: AMOXICILLIN
     Dosage: 1 GRAM, TID
     Route: 042
     Dates: start: 20060913
  242. CEFTRIAXONE [Suspect]
     Active Substance: CEFTRIAXONE
     Indication: Pneumonia
     Dosage: 2 GRAM
     Route: 042
     Dates: start: 2006
  243. CHLORPHENIRAMINE MALEATE [Suspect]
     Active Substance: CHLORPHENIRAMINE MALEATE
     Indication: Pneumonia
     Dosage: 10 MILLIGRAM, QID
     Route: 042
     Dates: start: 2006
  244. CHLORPHENIRAMINE MALEATE [Suspect]
     Active Substance: CHLORPHENIRAMINE MALEATE
     Indication: Ill-defined disorder
     Dosage: UNK
  245. SULFADIAZINE [Suspect]
     Active Substance: SULFADIAZINE
     Indication: Ill-defined disorder
     Dosage: UNK
     Route: 061
  246. SULFADIAZINE [Suspect]
     Active Substance: SULFADIAZINE
     Indication: Product used for unknown indication
     Dosage: UNK
     Route: 061
  247. TRICLOSAN [Suspect]
     Active Substance: TRICLOSAN
     Indication: Product used for unknown indication
     Dosage: UNK
  248. TRICLOSAN [Suspect]
     Active Substance: TRICLOSAN
     Dosage: UNK
     Dates: start: 2006
  249. TRICLOSAN [Suspect]
     Active Substance: TRICLOSAN
     Dosage: UNK
     Dates: start: 2006
  250. TRICLOSAN [Suspect]
     Active Substance: TRICLOSAN
     Dosage: UNK
     Dates: start: 2006
  251. TRICLOSAN [Suspect]
     Active Substance: TRICLOSAN
     Dosage: UNK
     Dates: start: 2006
  252. TRICLOSAN [Suspect]
     Active Substance: TRICLOSAN
     Dosage: UNK
     Dates: start: 2006
  253. TRICLOSAN [Suspect]
     Active Substance: TRICLOSAN
     Dosage: UNK
     Dates: start: 2006
  254. VITAMIN K [Suspect]
     Active Substance: PHYTONADIONE
     Indication: Ill-defined disorder
     Dosage: UNK
     Route: 065
     Dates: start: 2006
  255. VITAMIN K [Suspect]
     Active Substance: PHYTONADIONE
     Indication: Pneumonia
     Dosage: UNK
     Route: 065
  256. VITAMIN B COMPLEX [Suspect]
     Active Substance: CYANOCOBALAMIN\DEXPANTHENOL\NIACINAMIDE\PYRIDOXINE HYDROCHLORIDE\RIBOFLAVIN 5^-PHOSPHATE SODIUM\THIA
     Indication: Ill-defined disorder
     Dosage: UNK
     Route: 065
  257. CANRENOATE POTASSIUM [Suspect]
     Active Substance: CANRENOATE POTASSIUM
     Indication: Ill-defined disorder
     Dosage: UNK
     Route: 065
  258. ASPIRIN [Concomitant]
     Active Substance: ASPIRIN
     Indication: Ill-defined disorder
     Dosage: UNKNOWN/D
     Route: 048
  259. ASPIRIN [Concomitant]
     Active Substance: ASPIRIN
     Indication: Product used for unknown indication
     Dosage: UNK
     Route: 065
  260. ASPIRIN [Concomitant]
     Active Substance: ASPIRIN
     Dosage: UNK
  261. ATROVENT [Concomitant]
     Active Substance: IPRATROPIUM BROMIDE
     Indication: Ill-defined disorder
     Dosage: UNK, PRN
     Route: 065
  262. ATROVENT [Concomitant]
     Active Substance: IPRATROPIUM BROMIDE
     Indication: Product used for unknown indication
     Dosage: UNK, PRN
     Route: 065
  263. ATROVENT [Concomitant]
     Active Substance: IPRATROPIUM BROMIDE
     Dosage: UNK
  264. ATROVENT [Concomitant]
     Active Substance: IPRATROPIUM BROMIDE
     Dosage: 1 DOSAGE FORM, PRN
     Route: 065
  265. ATROVENT [Concomitant]
     Active Substance: IPRATROPIUM BROMIDE
     Dosage: UNK
  266. ATROVENT [Concomitant]
     Active Substance: IPRATROPIUM BROMIDE
     Dosage: DAILY DOSE TEXT: AS NECESSARY (NEBULISER)
     Route: 048
  267. ATROVENT [Concomitant]
     Active Substance: IPRATROPIUM BROMIDE
     Dosage: UNK
  268. ATROVENT [Concomitant]
     Active Substance: IPRATROPIUM BROMIDE
     Dosage: UNK
  269. ATROVENT [Concomitant]
     Active Substance: IPRATROPIUM BROMIDE
     Dosage: UNK
  270. ATROVENT [Concomitant]
     Active Substance: IPRATROPIUM BROMIDE
     Dosage: UNK
  271. ATROVENT [Concomitant]
     Active Substance: IPRATROPIUM BROMIDE
     Dosage: 1 DOSAGE FORM
     Route: 065
  272. CIPROFLOXACIN HYDROCHLORIDE [Concomitant]
     Active Substance: CIPROFLOXACIN HYDROCHLORIDE
     Indication: Ill-defined disorder
     Dosage: 400 MG, QD
     Route: 042
  273. CIPROFLOXACIN HYDROCHLORIDE [Concomitant]
     Active Substance: CIPROFLOXACIN HYDROCHLORIDE
     Dosage: 400 MILLIGRAM, QD
     Route: 042
  274. CIPROFLOXACIN HYDROCHLORIDE [Concomitant]
     Active Substance: CIPROFLOXACIN HYDROCHLORIDE
     Dosage: 400 MILLIGRAM, QD
     Route: 042
  275. CIPROFLOXACIN HYDROCHLORIDE [Concomitant]
     Active Substance: CIPROFLOXACIN HYDROCHLORIDE
     Dosage: 400 MILLIGRAM, QD (DAILY DOSE: 400 MILLIGRAM)
     Route: 042
  276. AMOXICILLIN [Concomitant]
     Active Substance: AMOXICILLIN
     Indication: Product used for unknown indication
     Dosage: 250 MILLIGRAM
     Route: 048
     Dates: start: 20060913
  277. AMOXICILLIN [Concomitant]
     Active Substance: AMOXICILLIN
     Indication: Ill-defined disorder
  278. AMOXICILLIN\CLAVULANATE POTASSIUM [Concomitant]
     Active Substance: AMOXICILLIN\CLAVULANATE POTASSIUM
     Indication: Product used for unknown indication
     Dosage: 375 MILLIGRAM, Q8H (DAILY DOSE TEXT: 375MG
     Route: 065
  279. AMOXICILLIN\CLAVULANATE POTASSIUM [Concomitant]
     Active Substance: AMOXICILLIN\CLAVULANATE POTASSIUM
     Dosage: 375 MILLIGRAM, TID
     Route: 065
     Dates: start: 20060913
  280. AMOXICILLIN\CLAVULANATE POTASSIUM [Concomitant]
     Active Substance: AMOXICILLIN\CLAVULANATE POTASSIUM
     Dosage: 875 MILLIGRAM, TID
     Route: 065
     Dates: start: 20060913
  281. AMOXICILLIN\CLAVULANATE POTASSIUM [Concomitant]
     Active Substance: AMOXICILLIN\CLAVULANATE POTASSIUM
     Dosage: 250 UNK
     Route: 048
  282. AMOXICILLIN\CLAVULANATE POTASSIUM [Concomitant]
     Active Substance: AMOXICILLIN\CLAVULANATE POTASSIUM
     Dosage: 375 MILLIGRAM
     Route: 065
     Dates: start: 20060913
  283. ERYTHROMYCIN STEARATE [Concomitant]
     Active Substance: ERYTHROMYCIN STEARATE
     Indication: Ill-defined disorder
     Dosage: 250 MILLIGRAM
     Route: 050
  284. ERYTHROMYCIN STEARATE [Concomitant]
     Active Substance: ERYTHROMYCIN STEARATE
     Dosage: 250MG ADDITIONAL INFO: NASOGASTRIC ROUTE
     Route: 050
  285. ERYTHROMYCIN STEARATE [Concomitant]
     Active Substance: ERYTHROMYCIN STEARATE
     Dosage: 250 MILLIGRAM, QD
     Route: 050
  286. ERYTHROMYCIN STEARATE [Concomitant]
     Active Substance: ERYTHROMYCIN STEARATE
     Dosage: 250MG ADDITIONAL INFO: NASOGASTRIC ROUTE
     Route: 050
  287. METOCLOPRAMIDE [Concomitant]
     Active Substance: METOCLOPRAMIDE
     Indication: Ill-defined disorder
     Dosage: DAILY DOSE: 10 MILLIGRAM(S)
     Route: 042
  288. METOCLOPRAMIDE [Concomitant]
     Active Substance: METOCLOPRAMIDE
     Dosage: 10 MG, QD
     Route: 042
  289. METOCLOPRAMIDE [Concomitant]
     Active Substance: METOCLOPRAMIDE
     Dosage: 10 MILLIGRAM
  290. MIDODRINE HYDROCHLORIDE [Concomitant]
     Active Substance: MIDODRINE HYDROCHLORIDE
     Indication: Ill-defined disorder
     Dosage: DAILY DOSE: UNKNOWN
     Route: 048
  291. MIDODRINE HYDROCHLORIDE [Concomitant]
     Active Substance: MIDODRINE HYDROCHLORIDE
     Dosage: UNK
     Route: 048
  292. PANTOPRAZOLE [Concomitant]
     Active Substance: PANTOPRAZOLE
     Indication: Ill-defined disorder
     Dosage: DAILY DOSE: 40 MILLIGRAM(S)
     Route: 042
  293. PANTOPRAZOLE [Concomitant]
     Active Substance: PANTOPRAZOLE
     Dosage: 40 MILLIGRAM
     Route: 042
  294. PANTOPRAZOLE [Concomitant]
     Active Substance: PANTOPRAZOLE
     Dosage: 40 MG
     Route: 042
  295. PIPERACILLIN SODIUM\TAZOBACTAM SODIUM [Concomitant]
     Active Substance: PIPERACILLIN SODIUM\TAZOBACTAM SODIUM
     Indication: Ill-defined disorder
     Dosage: 4.5 GRAM, TID
     Route: 042
     Dates: start: 20061009
  296. PIPERACILLIN SODIUM\TAZOBACTAM SODIUM [Concomitant]
     Active Substance: PIPERACILLIN SODIUM\TAZOBACTAM SODIUM
     Indication: Product used for unknown indication
     Dosage: INCREASED TO 4 TIMES DAILY BETWEEN 04/10/2006 AND
     Route: 042
     Dates: start: 20061004, end: 20061009
  297. PIPERACILLIN SODIUM\TAZOBACTAM SODIUM [Concomitant]
     Active Substance: PIPERACILLIN SODIUM\TAZOBACTAM SODIUM
     Dosage: 4.5 GRAM, QID
     Route: 042
     Dates: start: 2006
  298. PIPERACILLIN SODIUM\TAZOBACTAM SODIUM [Concomitant]
     Active Substance: PIPERACILLIN SODIUM\TAZOBACTAM SODIUM
     Dosage: 18 GRAM, QD
     Route: 042
     Dates: start: 20060104, end: 20060109
  299. PIPERACILLIN SODIUM\TAZOBACTAM SODIUM [Concomitant]
     Active Substance: PIPERACILLIN SODIUM\TAZOBACTAM SODIUM
     Dosage: 4.5 MG, QID
     Route: 042
     Dates: start: 20061004, end: 20061009
  300. PIPERACILLIN SODIUM\TAZOBACTAM SODIUM [Concomitant]
     Active Substance: PIPERACILLIN SODIUM\TAZOBACTAM SODIUM
     Dosage: 13.5 G, QD (DAILY DOSE TEXT: 4.5G 3/1DAYS)
     Route: 065
  301. PIPERACILLIN SODIUM\TAZOBACTAM SODIUM [Concomitant]
     Active Substance: PIPERACILLIN SODIUM\TAZOBACTAM SODIUM
     Dosage: 4.5 GRAM, TID
     Route: 042
     Dates: start: 2006
  302. PIPERACILLIN SODIUM\TAZOBACTAM SODIUM [Concomitant]
     Active Substance: PIPERACILLIN SODIUM\TAZOBACTAM SODIUM
     Dosage: 4.5 GRAM, TID
     Route: 042
  303. PIPERACILLIN SODIUM\TAZOBACTAM SODIUM [Concomitant]
     Active Substance: PIPERACILLIN SODIUM\TAZOBACTAM SODIUM
     Dosage: 5 G, 1 DOSE 6 HOURS
     Route: 065
  304. PIPERACILLIN SODIUM\TAZOBACTAM SODIUM [Concomitant]
     Active Substance: PIPERACILLIN SODIUM\TAZOBACTAM SODIUM
     Dosage: 5 G, 1 DOSE 6 HOURS
     Route: 065
  305. PIPERACILLIN SODIUM\TAZOBACTAM SODIUM [Concomitant]
     Active Substance: PIPERACILLIN SODIUM\TAZOBACTAM SODIUM
     Dosage: INCREASED TO 4 TIMES DAILY BETWEEN 04/10/2006 AND
     Route: 042
     Dates: start: 20061004, end: 20061009
  306. VANCOMYCIN [Concomitant]
     Active Substance: VANCOMYCIN
     Indication: Ill-defined disorder
     Dosage: DAILY DOSE TEXT: 1G 1/1DAYS
     Route: 042
  307. VANCOMYCIN [Concomitant]
     Active Substance: VANCOMYCIN
     Dosage: 1 GRAM QD
     Route: 042
  308. ZOPICLONE [Concomitant]
     Active Substance: ZOPICLONE
     Indication: Ill-defined disorder
     Dosage: DAILY DOSE: UNKNOWN
     Route: 048
  309. ZOPICLONE [Concomitant]
     Active Substance: ZOPICLONE
     Indication: Product used for unknown indication
     Dosage: UNK
     Route: 048
  310. ZOPICLONE [Concomitant]
     Active Substance: ZOPICLONE
     Dosage: UNK
  311. ZOPICLONE [Concomitant]
     Active Substance: ZOPICLONE
     Dosage: UNK
     Route: 048
  312. IPRATROPIUM BROMIDE [Concomitant]
     Active Substance: IPRATROPIUM BROMIDE
     Dosage: UNK
  313. TRICLOSAN [Concomitant]
     Active Substance: TRICLOSAN
     Indication: Product used for unknown indication
     Dosage: UNK
  314. TRICLOSAN [Concomitant]
     Active Substance: TRICLOSAN
     Dosage: UNK

REACTIONS (5)
  - Toxic epidermal necrolysis [Unknown]
  - Drug hypersensitivity [Unknown]
  - Product use in unapproved indication [Unknown]
  - Off label use [Unknown]
  - Off label use [Unknown]

NARRATIVE: CASE EVENT DATE: 20060101
